FAERS Safety Report 9617025 (Version 2)
Quarter: 2013Q4

REPORT INFORMATION
  Report Type: Spontaneous
  Country: US (occurrence: US)
  Receive Date: 20131011
  Receipt Date: 20131112
  Transmission Date: 20140711
  Serious: Yes (Hospitalization, Other)
  Sender: FDA-Public Use
  Company Number: CHPA2013US015371

PATIENT
  Age: 88 Year
  Sex: Female

DRUGS (2)
  1. MAALOX ANTACID/ANTIGAS MS LIQ COOL MINT [Suspect]
     Indication: DYSPEPSIA
     Dosage: 6 TSP, UNK
     Route: 048
  2. BABY ASPIRIN [Concomitant]
     Dosage: UNK
     Dates: end: 201308

REACTIONS (4)
  - Heart rate irregular [Recovered/Resolved]
  - Haemorrhage [Recovered/Resolved]
  - Incorrect dose administered [Unknown]
  - Therapeutic response decreased [Unknown]
